FAERS Safety Report 8184108-3 (Version None)
Quarter: 2012Q1

REPORT INFORMATION
  Report Type: 
  Country: None (occurrence: None)
  Receive Date: 20120203
  Receipt Date: 20111018
  Transmission Date: 20120608
  Serious: Yes (Hospitalization)
  Sender: FDA-Public Use
  Company Number: 125231

PATIENT
  Age: 56 Year
  Sex: Male

DRUGS (1)
  1. DAUNORUBICIN HCL [Suspect]
     Indication: ACUTE LEUKAEMIA
     Dosage: 120MG, 1X/DAY, IV
     Route: 042
     Dates: start: 20100415, end: 20100416

REACTIONS (3)
  - CHILLS [None]
  - HYPERTHERMIA [None]
  - INFECTION [None]
